FAERS Safety Report 24855787 (Version 1)
Quarter: 2025Q1

REPORT INFORMATION
  Report Type: Spontaneous
  Country: CN (occurrence: CN)
  Receive Date: 20250117
  Receipt Date: 20250117
  Transmission Date: 20250409
  Serious: Yes (Life-Threatening, Other)
  Sender: Teyro Labs
  Company Number: CN-TEYRO-2025-TY-000002

PATIENT

DRUGS (2)
  1. GEMCITABINE [Suspect]
     Active Substance: GEMCITABINE
     Indication: Pancreatic carcinoma
     Route: 065
  2. UPAMOSTAT [Suspect]
     Active Substance: UPAMOSTAT
     Indication: Pancreatic carcinoma
     Route: 048

REACTIONS (2)
  - Cerebral infarction [Unknown]
  - Upper gastrointestinal haemorrhage [Unknown]
